FAERS Safety Report 7090100-2 (Version None)
Quarter: 2010Q4

REPORT INFORMATION
  Report Type: 
  Country: None (occurrence: None)
  Receive Date: 20101109
  Receipt Date: 20101029
  Transmission Date: 20110411
  Serious: Yes (Other)
  Sender: FDA-Public Use
  Company Number: FR-BAYER-201040681GPV

PATIENT
  Age: 87 Year
  Sex: Male

DRUGS (1)
  1. CIFLOX [Suspect]
     Indication: URINARY TRACT INFECTION
     Dosage: UNIT DOSE: 500 MG
     Dates: start: 20100101, end: 20100101

REACTIONS (5)
  - ARTHRALGIA [None]
  - ECCHYMOSIS [None]
  - LIGAMENT DISORDER [None]
  - MUSCLE RUPTURE [None]
  - OEDEMA PERIPHERAL [None]
